FAERS Safety Report 7801502-8 (Version None)
Quarter: 2011Q4

REPORT INFORMATION
  Report Type: 
  Country: None (occurrence: None)
  Receive Date: 20111007
  Receipt Date: 20110928
  Transmission Date: 20120403
  Serious: Yes (Hospitalization)
  Sender: FDA-Public Use
  Company Number: IT-JNJFOC-20111000175

PATIENT
  Sex: Female

DRUGS (7)
  1. CANDESARTAN CILEXETIL [Concomitant]
     Indication: PRODUCT USED FOR UNKNOWN INDICATION
     Route: 065
  2. LANSOPRAZOLE [Concomitant]
     Indication: PRODUCT USED FOR UNKNOWN INDICATION
     Route: 065
  3. DURAGESIC-100 [Suspect]
     Indication: PAIN
     Dosage: 1 DOSE(S)
     Route: 062
     Dates: start: 20110101, end: 20110514
  4. LYRICA [Concomitant]
     Indication: PRODUCT USED FOR UNKNOWN INDICATION
     Route: 065
  5. NADROPARIN [Concomitant]
     Indication: PRODUCT USED FOR UNKNOWN INDICATION
     Route: 065
  6. MEROPENEM [Concomitant]
     Indication: PRODUCT USED FOR UNKNOWN INDICATION
     Route: 065
  7. TARGOCID [Concomitant]
     Indication: INFECTION
     Route: 065

REACTIONS (3)
  - PSYCHOMOTOR HYPERACTIVITY [None]
  - CONFUSIONAL STATE [None]
  - INSOMNIA [None]
